FAERS Safety Report 19808701 (Version 1)
Quarter: 2021Q3

REPORT INFORMATION
  Report Type: Spontaneous
  Country: US (occurrence: US)
  Receive Date: 20210903
  Receipt Date: 20210903
  Transmission Date: 20211014
  Serious: Yes (Hospitalization)
  Sender: FDA-Public Use
  Company Number: None

PATIENT
  Age: 58 Year
  Sex: Male
  Weight: 95.98 kg

DRUGS (2)
  1. RITUXIMAB (MOABC2B8 ANTI CD20, CHIMERIC) [Suspect]
     Active Substance: RITUXIMAB
     Dates: end: 20210825
  2. BENDAMUSTINE HYDROCHLORIDE. [Suspect]
     Active Substance: BENDAMUSTINE HYDROCHLORIDE
     Dates: end: 20210826

REACTIONS (8)
  - Cough [None]
  - Proctalgia [None]
  - Abdominal pain [None]
  - Nasopharyngitis [None]
  - Chest pain [None]
  - Dyspnoea [None]
  - Intestinal perforation [None]
  - Vomiting [None]

NARRATIVE: CASE EVENT DATE: 20210828
